FAERS Safety Report 25079764 (Version 1)
Quarter: 2025Q1

REPORT INFORMATION
  Report Type: Report from Study
  Country: PH (occurrence: PH)
  Receive Date: 20250314
  Receipt Date: 20250314
  Transmission Date: 20250409
  Serious: Yes (Death)
  Sender: OTSUKA
  Company Number: PH-MMM-Otsuka-BXUE71AJ

PATIENT

DRUGS (2)
  1. TOLVAPTAN [Suspect]
     Active Substance: TOLVAPTAN
     Indication: Swelling
     Dosage: 0.5 DF, TIW (15MG 1/2 TABLET EVERY M-W-F)
     Route: 048
     Dates: start: 202402
  2. TOLVAPTAN [Suspect]
     Active Substance: TOLVAPTAN
     Indication: Nephropathy

REACTIONS (1)
  - Nephropathy [Fatal]
